FAERS Safety Report 15960584 (Version 2)
Quarter: 2023Q2

REPORT INFORMATION
  Report Type: Spontaneous
  Country: NL (occurrence: NL)
  Receive Date: 20190214
  Receipt Date: 20230401
  Transmission Date: 20230722
  Serious: Yes (Death, Hospitalization, Other)
  Sender: FDA-Public Use
  Company Number: NL-AUROBINDO-AUR-APL-2011-00331

PATIENT
  Age: 68 Year
  Sex: Male
  Weight: 73 kg

DRUGS (13)
  1. METFORMIN HYDROCHLORIDE [Suspect]
     Active Substance: METFORMIN HYDROCHLORIDE
     Indication: Product used for unknown indication
     Dosage: 1 UNK,TWO TIMES A DAY,
     Route: 065
     Dates: start: 200810
  2. METFORMIN HYDROCHLORIDE [Suspect]
     Active Substance: METFORMIN HYDROCHLORIDE
     Dosage: 500 MILLIGRAM, ONCE A DAY (1 UNK, 2X/DAY)
     Route: 048
     Dates: start: 200810
  3. LYRICA [Suspect]
     Active Substance: PREGABALIN
     Indication: Pain in extremity
     Dosage: 300 MILLIGRAM, ONCE A DAY
     Route: 048
     Dates: start: 2008
  4. ACENOCOUMAROL [Concomitant]
     Active Substance: ACENOCOUMAROL
     Indication: Thrombosis
     Dosage: UNK
     Route: 065
  5. Ascal [Concomitant]
     Indication: Product used for unknown indication
     Dosage: UNK, ONCE A DAY (1 UNK, 1X/DAY)
     Route: 065
  6. INSULIN NOS [Concomitant]
     Active Substance: INSULIN NOS
     Indication: Product used for unknown indication
     Dosage: 1 DOSAGE FORM
     Route: 058
     Dates: start: 200810
  7. MOVICOLON [Concomitant]
     Active Substance: POLYETHYLENE GLYCOL 3350\POTASSIUM CHLORIDE\SODIUM BICARBONATE\SODIUM CHLORIDE
     Indication: Product used for unknown indication
     Dosage: 1 DOSAGE FORM
     Route: 048
  8. OXYCONTIN [Concomitant]
     Active Substance: OXYCODONE HYDROCHLORIDE
     Indication: Product used for unknown indication
     Dosage: UNK
     Route: 065
  9. PANTOZOL [Concomitant]
     Active Substance: PANTOPRAZOLE SODIUM
     Indication: Product used for unknown indication
     Dosage: 40 MILLIGRAM
     Route: 048
     Dates: start: 200810
  10. PLAVIX [Concomitant]
     Active Substance: CLOPIDOGREL BISULFATE
     Indication: Product used for unknown indication
     Dosage: UNK, ONCE A DAY (1 UNK, 1X/DAY)
     Route: 065
  11. PREDNISONE [Concomitant]
     Active Substance: PREDNISONE
     Indication: Product used for unknown indication
     Dosage: 60 MILLIGRAM, ONCE A DAY
     Route: 048
     Dates: start: 200810
  12. DILTIAZEM HYDROCHLORIDE [Concomitant]
     Active Substance: DILTIAZEM HYDROCHLORIDE
     Indication: Product used for unknown indication
     Dosage: UNK, ONCE A DAY (60 UNK, 3X/DAY)
     Route: 065
  13. TRAMADOL [Concomitant]
     Active Substance: TRAMADOL
     Indication: Product used for unknown indication
     Dosage: UNK
     Route: 065

REACTIONS (3)
  - Pulmonary fibrosis [Fatal]
  - Alveolitis [Unknown]
  - Influenza virus test positive [Unknown]

NARRATIVE: CASE EVENT DATE: 20080930
